FAERS Safety Report 8500963-9 (Version None)
Quarter: 2012Q3

REPORT INFORMATION
  Report Type: 
  Country: None (occurrence: None)
  Receive Date: 20120703
  Receipt Date: 20120703
  Transmission Date: 20120928
  Serious: Yes (Hospitalization)
  Sender: FDA-Public Use
  Company Number: None

PATIENT
  Age: 66 Year
  Sex: Male
  Weight: 105.2 kg

DRUGS (4)
  1. DOCETAXEL [Suspect]
     Indication: TONGUE CANCER METASTATIC
     Dosage: 165 MG ONCE IV
     Route: 042
     Dates: start: 20120529, end: 20120530
  2. DOCETAXEL [Suspect]
     Indication: METASTASES TO LYMPH NODES
     Dosage: 165 MG ONCE IV
     Route: 042
     Dates: start: 20120529, end: 20120530
  3. DOCETAXEL [Suspect]
     Indication: METASTASES TO LUNG
     Dosage: 165 MG ONCE IV
     Route: 042
     Dates: start: 20120529, end: 20120530
  4. DOCETAXEL [Suspect]
     Indication: METASTASES TO LIVER
     Dosage: 165 MG ONCE IV
     Route: 042
     Dates: start: 20120529, end: 20120530

REACTIONS (5)
  - BONE MARROW FAILURE [None]
  - HICCUPS [None]
  - DIARRHOEA [None]
  - METASTASES TO LARYNX [None]
  - FEBRILE NEUTROPENIA [None]
